FAERS Safety Report 13245157 (Version 1)
Quarter: 2017Q1

REPORT INFORMATION
  Report Type: Spontaneous
  Country: JP (occurrence: JP)
  Receive Date: 20170217
  Receipt Date: 20170217
  Transmission Date: 20170428
  Serious: Yes (Death)
  Sender: FDA-Public Use
  Company Number: JP-MALLINCKRODT-T201700555

PATIENT
  Age: 52 Year
  Sex: Male
  Weight: 54 kg

DRUGS (8)
  1. ABSTRAL [Concomitant]
     Active Substance: FENTANYL CITRATE
     Dosage: 0.1 MG, UNK
     Route: 060
     Dates: start: 20150708
  2. FAMOTIDINE DCI [Concomitant]
     Active Substance: FAMOTIDINE
     Dosage: 2 DF, UNK
     Route: 048
     Dates: start: 20150626, end: 201507
  3. METHADONE [Suspect]
     Active Substance: METHADONE HYDROCHLORIDE
     Indication: CANCER PAIN
     Dosage: 10 MG, DAILY DOSE 30 MG
     Route: 048
     Dates: start: 20150630, end: 20150707
  4. SULPERAZON [Concomitant]
     Active Substance: CEFOPERAZONE SODIUM\SULBACTAM SODIUM
     Dosage: 2 DF, UNK
     Route: 051
     Dates: start: 20150701, end: 20150706
  5. METHADONE [Suspect]
     Active Substance: METHADONE HYDROCHLORIDE
     Dosage: 15 MG, DAILY DOSE 45 MG
     Route: 048
     Dates: start: 20150707, end: 20150803
  6. BICARBON [Concomitant]
     Active Substance: SODIUM BICARBONATE
     Dosage: 1 DF, UNK
     Route: 051
     Dates: start: 20150620, end: 20150707
  7. BICARBON [Concomitant]
     Active Substance: SODIUM BICARBONATE
     Dosage: 3 DF, UNK
     Route: 051
     Dates: start: 20150701, end: 20150706
  8. RINDERON V [Concomitant]
     Active Substance: BETAMETHASONE VALERATE
     Indication: ANALGESIC THERAPY
     Dosage: 4 MG, UNK
     Route: 048
     Dates: start: 20150626, end: 20150713

REACTIONS (1)
  - Ureteric cancer [Fatal]

NARRATIVE: CASE EVENT DATE: 20150804
